FAERS Safety Report 5448623-5 (Version None)
Quarter: 2007Q3

REPORT INFORMATION
  Report Type: 
  Country: None (occurrence: None)
  Receive Date: 20070911
  Receipt Date: 20070907
  Transmission Date: 20080115
  Serious: Yes (Other)
  Sender: FDA-Public Use
  Company Number: PT-BRISTOL-MYERS SQUIBB COMPANY-13901228

PATIENT
  Age: 50 Decade
  Sex: Male

DRUGS (1)
  1. SPRYCEL [Suspect]
     Dates: start: 20070401

REACTIONS (2)
  - LUNG NEOPLASM [None]
  - PLEURAL EFFUSION [None]
